FAERS Safety Report 15773728 (Version 3)
Quarter: 2019Q1

REPORT INFORMATION
  Report Type: Report from Study
  Country: None (occurrence: US)
  Receive Date: 20181229
  Receipt Date: 20190209
  Transmission Date: 20190417
  Serious: Yes (Life-Threatening, Hospitalization)
  Sender: FDA-Public Use
  Company Number: US-ABBVIE-18K-163-2568632-00

PATIENT
  Age: 61 Year
  Sex: Female
  Weight: 93.07 kg

DRUGS (2)
  1. HUMIRA [Suspect]
     Active Substance: ADALIMUMAB
     Dosage: HUMIRA CITRATE FREE
     Route: 058
     Dates: end: 2018
  2. HUMIRA [Suspect]
     Active Substance: ADALIMUMAB
     Indication: CROHN^S DISEASE
     Dosage: HUMIRA CITRATE FREE
     Route: 058
     Dates: end: 201810

REACTIONS (10)
  - Crohn^s disease [Recovered/Resolved]
  - Injection site pruritus [Unknown]
  - Bronchitis [Recovered/Resolved]
  - Pruritus allergic [Recovered/Resolved]
  - Sepsis [Recovered/Resolved]
  - Dermatitis allergic [Recovered/Resolved]
  - Allergic oedema [Recovered/Resolved]
  - Hypersensitivity [Not Recovered/Not Resolved]
  - Influenza [Recovered/Resolved]
  - Injection site swelling [Unknown]

NARRATIVE: CASE EVENT DATE: 2018
